FAERS Safety Report 19212888 (Version 1)
Quarter: 2021Q2

REPORT INFORMATION
  Report Type: Spontaneous
  Country: BR (occurrence: BR)
  Receive Date: 20210504
  Receipt Date: 20210504
  Transmission Date: 20210717
  Serious: Yes (Hospitalization, Other)
  Sender: FDA-Public Use
  Company Number: BR-TAKEDA-2021TUS027996

PATIENT
  Age: 33 Year
  Sex: Female

DRUGS (5)
  1. PREDNISONE. [Concomitant]
     Active Substance: PREDNISONE
     Dosage: 40 MILLIGRAM, QD
     Route: 065
  2. SULFASALAZINE. [Concomitant]
     Active Substance: SULFASALAZINE
     Dosage: 4 GRAM, QD
     Route: 065
  3. URSODEOXYCHOLIC ACID [Concomitant]
     Active Substance: URSODIOL
     Dosage: 900 MILLIGRAM, QD
     Route: 065
  4. MESALAZINE [Suspect]
     Active Substance: MESALAMINE
     Indication: COLITIS ULCERATIVE
     Dosage: 1 GRAM, QD
     Route: 054
  5. HYDROCORTISONE. [Concomitant]
     Active Substance: HYDROCORTISONE
     Dosage: 300 MILLIGRAM, QD
     Route: 065

REACTIONS (14)
  - Latent tuberculosis [Unknown]
  - Dyspnoea [Recovering/Resolving]
  - Lung opacity [Recovering/Resolving]
  - SARS-CoV-2 test positive [Recovering/Resolving]
  - Haemoglobin decreased [Unknown]
  - Secretion discharge [Unknown]
  - Heart rate increased [Unknown]
  - Cough [Recovering/Resolving]
  - Diarrhoea haemorrhagic [Recovered/Resolved]
  - Urine protein/creatinine ratio abnormal [Unknown]
  - Asthenia [Unknown]
  - Oxygen saturation decreased [Recovering/Resolving]
  - Abdominal pain [Recovered/Resolved]
  - Diarrhoea [Recovered/Resolved]

NARRATIVE: CASE EVENT DATE: 202003
